FAERS Safety Report 5968801-6 (Version None)
Quarter: 2008Q4

REPORT INFORMATION
  Report Type: 
  Country: None (occurrence: None)
  Receive Date: 20081126
  Receipt Date: 20081117
  Transmission Date: 20090506
  Serious: Yes (Life-Threatening, Hospitalization)
  Sender: FDA-Public Use
  Company Number: AU-ROCHE-597524

PATIENT
  Sex: Female

DRUGS (10)
  1. DIAZEPAM [Suspect]
     Indication: DRUG USE FOR UNKNOWN INDICATION
     Route: 065
  2. BENZHEXOL HYDROCHLORIDE [Suspect]
     Indication: DRUG USE FOR UNKNOWN INDICATION
     Route: 065
  3. CHAMPIX [Suspect]
     Indication: DRUG USE FOR UNKNOWN INDICATION
     Route: 065
     Dates: start: 20080501
  4. FLUPENTHIXOL [Suspect]
     Indication: DRUG USE FOR UNKNOWN INDICATION
     Dosage: DRUG REPORTED AS FLUPENTHIXOL DECANOATE.
     Route: 065
  5. ZIPRASIDONE HCL [Suspect]
     Indication: DRUG USE FOR UNKNOWN INDICATION
     Route: 065
     Dates: start: 20080715
  6. CALTRATE [Concomitant]
     Dosage: ONE DOSE UNSPEC DAILY.
  7. COLOXYL WITH SENNA [Concomitant]
     Dosage: TWO DOSE UNSPEC DAILY.
  8. SERETIDE [Concomitant]
     Dosage: DRUG REPORTED AS SERETIDE ACCUHALER NOS. TWO DOSE UNSPEC DAILY.
  9. SPIRIVA [Concomitant]
     Dosage: ONE DOSE UNSPEC DAILY.
  10. VENTOLIN [Concomitant]
     Dosage: 6 DOSE UNSPEC DAILY.

REACTIONS (2)
  - HYPONATRAEMIA [None]
  - RESPIRATORY FAILURE [None]
